FAERS Safety Report 18043620 (Version 1)
Quarter: 2020Q3

REPORT INFORMATION
  Report Type: Spontaneous
  Country: US (occurrence: US)
  Receive Date: 20200717
  Receipt Date: 20200717
  Transmission Date: 20201103
  Serious: Yes (Hospitalization)
  Sender: FDA-Public Use
  Company Number: None

PATIENT
  Age: 25 Year
  Sex: Female

DRUGS (18)
  1. TRETINOIN. [Concomitant]
     Active Substance: TRETINOIN
  2. RETACRIT [Suspect]
     Active Substance: EPOETIN ALFA-EPBX
     Dosage: ?          OTHER STRENGTH:10000 U/ML;OTHER DOSE:10000 UNITS;?
     Route: 058
     Dates: start: 20190517
  3. FAMOTIDINE. [Concomitant]
     Active Substance: FAMOTIDINE
  4. HYDRALAZINE [Concomitant]
     Active Substance: HYDRALAZINE HYDROCHLORIDE
  5. SODIUM BICAR [Concomitant]
  6. GAVILYTE G [Concomitant]
     Active Substance: POLYETHYLENE GLYCOL 3350\POTASSIUM CHLORIDE\SODIUM BICARBONATE\SODIUM CHLORIDE\SODIUM SULFATE ANHYDROUS
  7. MYCOPHENOLAT [Concomitant]
     Active Substance: MYCOPHENOLATE MOFETIL
  8. PREDNISONE. [Concomitant]
     Active Substance: PREDNISONE
  9. AZITHROMYCIN ANHYDROUS. [Concomitant]
     Active Substance: AZITHROMYCIN ANHYDROUS
  10. CALCITRIOL. [Concomitant]
     Active Substance: CALCITRIOL
  11. CARVEDILOL. [Concomitant]
     Active Substance: CARVEDILOL
  12. CEPHALEXIN. [Concomitant]
     Active Substance: CEPHALEXIN
  13. ENVARSUS XR [Concomitant]
     Active Substance: TACROLIMUS
  14. FEROSUL [Concomitant]
     Active Substance: FERROUS SULFATE
  15. LEVOFLOXACIN. [Concomitant]
     Active Substance: LEVOFLOXACIN
  16. NIFEDIDPINE [Concomitant]
  17. ALBUTEROL AER [Suspect]
     Active Substance: ALBUTEROL
  18. FUROSEMIDE. [Concomitant]
     Active Substance: FUROSEMIDE

REACTIONS (1)
  - Pneumonia [None]

NARRATIVE: CASE EVENT DATE: 20200708
